FAERS Safety Report 14988011 (Version 1)
Quarter: 2018Q2

REPORT INFORMATION
  Report Type: Other
  Country: FR (occurrence: FR)
  Receive Date: 20180608
  Receipt Date: 20180608
  Transmission Date: 20180711
  Serious: Yes (Life-Threatening)
  Sender: FDA-Public Use
  Company Number: FR-HQ SPECIALTY-FR-2018INT000087

PATIENT

DRUGS (10)
  1. KETAMINE [Suspect]
     Active Substance: KETAMINE
     Dosage: 1 DOSAGE FORM
     Route: 042
     Dates: start: 2018, end: 2018
  2. DIPRIVAN [Suspect]
     Active Substance: PROPOFOL
     Indication: GENERAL ANAESTHESIA
     Dosage: 1 DOSAGE FORM
     Route: 042
     Dates: start: 201804, end: 201804
  3. XYLOCARD [Suspect]
     Active Substance: LIDOCAINE HYDROCHLORIDE
     Dosage: 1 DOSAGE FORM
     Route: 042
     Dates: start: 2018, end: 2018
  4. KETAMINE [Suspect]
     Active Substance: KETAMINE
     Indication: GENERAL ANAESTHESIA
     Dosage: 1 DOSAGE FORM
     Route: 042
     Dates: start: 201804, end: 201804
  5. DIPRIVAN [Suspect]
     Active Substance: PROPOFOL
     Dosage: 1 DOSAGE FORM
     Route: 042
     Dates: start: 2018, end: 2018
  6. ESMERON [Suspect]
     Active Substance: ROCURONIUM BROMIDE
     Dosage: 1 DOSAGE FORM
     Route: 042
     Dates: start: 2018, end: 2018
  7. XYLOCARD [Suspect]
     Active Substance: LIDOCAINE HYDROCHLORIDE
     Indication: GENERAL ANAESTHESIA
     Dosage: 1 DOSAGE FORM
     Route: 042
     Dates: start: 201804, end: 201804
  8. DEXMEDETOMIDINE HYDROCHLORIDE. [Suspect]
     Active Substance: DEXMEDETOMIDINE HYDROCHLORIDE
     Indication: GENERAL ANAESTHESIA
     Dosage: 1 DOSAGE FORM
     Route: 042
     Dates: start: 201804, end: 201804
  9. DEXMEDETOMIDINE HYDROCHLORIDE. [Suspect]
     Active Substance: DEXMEDETOMIDINE HYDROCHLORIDE
     Dosage: 1 DOSAGE FORM
     Route: 042
     Dates: start: 2018, end: 2018
  10. ESMERON [Suspect]
     Active Substance: ROCURONIUM BROMIDE
     Indication: GENERAL ANAESTHESIA
     Dosage: 1 DOSAGE FORM
     Route: 042
     Dates: start: 201804, end: 201804

REACTIONS (2)
  - Anaphylactic shock [Recovered/Resolved]
  - Product use in unapproved indication [Unknown]

NARRATIVE: CASE EVENT DATE: 2018
